FAERS Safety Report 7041952-3 (Version None)
Quarter: 2010Q4

REPORT INFORMATION
  Report Type: 
  Country: None (occurrence: None)
  Receive Date: 20101013
  Receipt Date: 20100204
  Transmission Date: 20110411
  Serious: No
  Sender: FDA-Public Use
  Company Number: US-ASTRAZENECA-2010SE05152

PATIENT
  Age: 64 Year
  Sex: Male
  Weight: 102.1 kg

DRUGS (3)
  1. SYMBICORT [Suspect]
     Dosage: 80/4.5
     Route: 055
     Dates: end: 20100201
  2. SYMBICORT [Suspect]
     Dosage: 160/4.5
     Route: 055
     Dates: start: 20100201
  3. COMBIVENT [Concomitant]

REACTIONS (2)
  - BURNING SENSATION [None]
  - DYSPNOEA [None]
